FAERS Safety Report 21056053 (Version 1)
Quarter: 2022Q3

REPORT INFORMATION
  Report Type: Spontaneous
  Country: ES (occurrence: ES)
  Receive Date: 20220708
  Receipt Date: 20220708
  Transmission Date: 20221027
  Serious: Yes (Life-Threatening, Hospitalization, Other)
  Sender: FDA-Public Use
  Company Number: ES-AEMPS-1207702

PATIENT
  Age: 45 Year
  Sex: Female

DRUGS (7)
  1. DOCETAXEL [Interacting]
     Active Substance: DOCETAXEL
     Indication: Leiomyosarcoma
     Dosage: UNK (EVERY 3 WEEKS)
     Route: 065
     Dates: start: 20220215
  2. GEMCITABINE [Interacting]
     Active Substance: GEMCITABINE
     Indication: Leiomyosarcoma
     Dosage: UNK (EVERY 3 WEEKS)
     Route: 065
     Dates: start: 20220215
  3. FLUOXETINE HYDROCHLORIDE [Concomitant]
     Active Substance: FLUOXETINE HYDROCHLORIDE
     Indication: Product used for unknown indication
     Dosage: UNK
     Route: 048
     Dates: start: 20220125
  4. FUROSEMIDE [Concomitant]
     Active Substance: FUROSEMIDE
     Indication: Oedema
     Dosage: 40 MILLIGRAM, ONCE A DAY
     Route: 048
     Dates: start: 20220210
  5. GABAPENTIN [Concomitant]
     Active Substance: GABAPENTIN
     Indication: Product used for unknown indication
     Dosage: UNK (1 TABLET 3 TIMES A DAY)
     Route: 048
     Dates: start: 20211006
  6. LEVOFLOXACIN [Concomitant]
     Active Substance: LEVOFLOXACIN
     Indication: Mastitis
     Dosage: 500 MILLIGRAM, ONCE A DAY
     Route: 048
     Dates: start: 20220211
  7. METOCLOPRAMIDA ACCORD [Concomitant]
     Indication: Product used for unknown indication
     Dosage: UNK
     Route: 048
     Dates: start: 20220125

REACTIONS (2)
  - Neutropenia [Recovered/Resolved]
  - Pancytopenia [Recovered/Resolved]

NARRATIVE: CASE EVENT DATE: 20220217
